FAERS Safety Report 4698024-2 (Version None)
Quarter: 2005Q2

REPORT INFORMATION
  Report Type: 
  Country: None (occurrence: None)
  Receive Date: 20050623
  Receipt Date: 20050530
  Transmission Date: 20051028
  Serious: Yes (Hospitalization)
  Sender: FDA-Public Use
  Company Number: CA-AMGEN-US137128

PATIENT
  Sex: Female

DRUGS (3)
  1. ENBREL [Suspect]
     Indication: RHEUMATOID ARTHRITIS
     Route: 058
     Dates: start: 20011123, end: 20050401
  2. ARTHROTEC [Concomitant]
  3. ACCUPRIL [Concomitant]

REACTIONS (8)
  - CONDITION AGGRAVATED [None]
  - DEHYDRATION [None]
  - DIARRHOEA [None]
  - HERPES ZOSTER [None]
  - PAROTITIS [None]
  - PURULENCE [None]
  - RASH [None]
  - RHEUMATOID ARTHRITIS [None]
